FAERS Safety Report 6296153-3 (Version None)
Quarter: 2009Q3

REPORT INFORMATION
  Report Type: 
  Country: None (occurrence: None)
  Receive Date: 20090803
  Receipt Date: 20090803
  Transmission Date: 20100115
  Serious: Yes (Other)
  Sender: FDA-Public Use
  Company Number: None

PATIENT
  Sex: Female
  Weight: 22.6799 kg

DRUGS (2)
  1. INSULIN SYRINGE 3/10 CC, 8 MM, 31G SHORT NEEDLE BECTON DICKINSON AND C [Suspect]
     Indication: TYPE 1 DIABETES MELLITUS
     Dosage: VARIABLE SQ
     Route: 058
     Dates: start: 20090501, end: 20090801
  2. INSULIN SYRINGE 3/10 CC, 8 MM, 31G SHORT NEEDLE BECTON DICKINSON AND C [Suspect]

REACTIONS (3)
  - BLOOD GLUCOSE DECREASED [None]
  - PRODUCT QUALITY ISSUE [None]
  - SYRINGE ISSUE [None]
